FAERS Safety Report 9344770 (Version 2)
Quarter: 2013Q4

REPORT INFORMATION
  Report Type: Spontaneous
  Country: AT (occurrence: AT)
  Receive Date: 20130612
  Receipt Date: 20131007
  Transmission Date: 20140711
  Serious: Yes (Other)
  Sender: FDA-Public Use
  Company Number: AT-BRISTOL-MYERS SQUIBB COMPANY-18971093

PATIENT
  Age: 63 Year
  Sex: Male

DRUGS (9)
  1. ABILIFY [Suspect]
     Indication: BIPOLAR DISORDER
     Dosage: STARTED WITH 2.5MG
     Route: 048
     Dates: start: 20130315
  2. TEGRETOL [Concomitant]
     Dates: end: 201307
  3. ATARAX [Concomitant]
  4. ACECOMB [Concomitant]
     Dosage: 1DF=20MG+25MG
  5. ZANIDIP [Concomitant]
  6. JANUMET [Concomitant]
  7. SORTIS [Concomitant]
  8. ACEMIN [Concomitant]
  9. TAMSULOSIN [Concomitant]

REACTIONS (1)
  - Electrocardiogram QT prolonged [Unknown]
